FAERS Safety Report 9009419 (Version 1)
Quarter: 2013Q1

REPORT INFORMATION
  Report Type: Report from Study
  Country: CA (occurrence: CA)
  Receive Date: 20130111
  Receipt Date: 20130111
  Transmission Date: 20140127
  Serious: Yes (Other)
  Sender: FDA-Public Use
  Company Number: CA-JNJFOC-20130102795

PATIENT
  Sex: Female
  Weight: 44.8 kg

DRUGS (8)
  1. REMICADE [Suspect]
     Indication: CROHN^S DISEASE
     Route: 042
     Dates: start: 200901
  2. ALTACE [Concomitant]
     Route: 065
  3. CARDIZEM [Concomitant]
     Route: 065
  4. BUSCOPAN [Concomitant]
     Route: 065
  5. VOVERAN SR [Concomitant]
     Route: 065
  6. PREDNISONE [Concomitant]
     Route: 065
  7. MORPHINE [Concomitant]
     Route: 065
  8. FENTANYL [Concomitant]
     Route: 065

REACTIONS (6)
  - Contusion [Recovered/Resolved]
  - Diarrhoea [Recovered/Resolved]
  - Influenza [Recovered/Resolved]
  - Fall [Recovered/Resolved]
  - Abdominal pain [Recovered/Resolved]
  - Nasopharyngitis [Recovered/Resolved]
